FAERS Safety Report 24805721 (Version 3)
Quarter: 2025Q1

REPORT INFORMATION
  Report Type: Spontaneous
  Country: US (occurrence: US)
  Receive Date: 20250103
  Receipt Date: 20250114
  Transmission Date: 20250408
  Serious: Yes (Hospitalization, Other)
  Sender: PFIZER
  Company Number: US-PFIZER INC-PV202400169298

PATIENT
  Age: 85 Year
  Sex: Female
  Weight: 62.7 kg

DRUGS (13)
  1. VYNDAMAX [Suspect]
     Active Substance: TAFAMIDIS
     Indication: Subclavian artery stenosis
     Dosage: ONE 61 MG TAFAMIDIS CAPSULE ORALLY ONCE DAILY
     Route: 048
     Dates: start: 20230728
  2. VYNDAMAX [Suspect]
     Active Substance: TAFAMIDIS
     Indication: Heart failure with preserved ejection fraction
  3. VYNDAMAX [Suspect]
     Active Substance: TAFAMIDIS
     Indication: Chronic left ventricular failure
  4. VYNDAMAX [Suspect]
     Active Substance: TAFAMIDIS
     Indication: Acquired ATTR amyloidosis
  5. ELIQUIS [Suspect]
     Active Substance: APIXABAN
     Indication: Atrial fibrillation
     Dosage: 2.5 MG, 2X/DAY
     Route: 048
     Dates: start: 20240909, end: 20241025
  6. CRESTOR [Concomitant]
     Active Substance: ROSUVASTATIN CALCIUM
     Dosage: TAKE 1 TABLET BY MOUTH DAILY
     Route: 048
     Dates: start: 20240315
  7. LISINOPRIL [Concomitant]
     Active Substance: LISINOPRIL
     Dates: end: 20240905
  8. SPIRONOLACTONE [Concomitant]
     Active Substance: SPIRONOLACTONE
     Dates: end: 20240905
  9. FARXIGA [Concomitant]
     Active Substance: DAPAGLIFLOZIN PROPANEDIOL
     Dates: end: 20240905
  10. MIDODRINE [Concomitant]
     Active Substance: MIDODRINE
  11. LASIX [Concomitant]
     Active Substance: FUROSEMIDE
  12. AMIODARONE [Concomitant]
     Active Substance: AMIODARONE
     Indication: Atrial fibrillation
     Dosage: 200 MG, DAILY
  13. AMIODARONE [Concomitant]
     Active Substance: AMIODARONE
     Dosage: 200 MG, 1X/DAY

REACTIONS (17)
  - Acute kidney injury [Unknown]
  - Syncope [Unknown]
  - Tachycardia [Recovered/Resolved]
  - Atrial fibrillation [Unknown]
  - Clostridium difficile infection [Unknown]
  - Dehydration [Unknown]
  - Blood pressure fluctuation [Unknown]
  - Brain natriuretic peptide increased [Unknown]
  - Weight fluctuation [Unknown]
  - Urinary tract infection [Unknown]
  - Peripheral swelling [Unknown]
  - Rash [Unknown]
  - Muscle atrophy [Unknown]
  - Fluid retention [Unknown]
  - Hypertension [Unknown]
  - Blood pressure fluctuation [Unknown]
  - Weight decreased [Unknown]

NARRATIVE: CASE EVENT DATE: 20240901
